FAERS Safety Report 7414800-7 (Version None)
Quarter: 2011Q2

REPORT INFORMATION
  Report Type: 
  Country: None (occurrence: None)
  Receive Date: 20110414
  Receipt Date: 20100322
  Transmission Date: 20111010
  Serious: No
  Sender: FDA-Public Use
  Company Number: A0851380A

PATIENT
  Age: 81 Year
  Sex: Female

DRUGS (3)
  1. TEGRETOL [Concomitant]
  2. LOTRIMIN [Concomitant]
  3. LUXIQ [Suspect]
     Indication: DERMATOSIS
     Dosage: 1APP PER DAY
     Route: 061
     Dates: start: 20080101

REACTIONS (1)
  - DRUG INEFFECTIVE [None]
